FAERS Safety Report 18951455 (Version 2)
Quarter: 2021Q1

REPORT INFORMATION
  Report Type: Spontaneous
  Country: IL (occurrence: IL)
  Receive Date: 20210301
  Receipt Date: 20210316
  Transmission Date: 20210420
  Serious: Yes (Other)
  Sender: FDA-Public Use
  Company Number: IL-SA-2021SA060870

PATIENT
  Age: 57 Year
  Sex: Male

DRUGS (6)
  1. RANITIDINE. [Suspect]
     Active Substance: RANITIDINE
     Indication: DUODENAL ULCER
     Dosage: 300 MG, QD
  2. ATENOLOL. [Concomitant]
     Active Substance: ATENOLOL
     Dosage: 50 MG, QD
  3. HYDRALAZINE [Concomitant]
     Active Substance: HYDRALAZINE HYDROCHLORIDE
     Dosage: 150 MG, QD
  4. ISOSORBIDE DINITRATE. [Concomitant]
     Active Substance: ISOSORBIDE DINITRATE
     Dosage: 60 MG, QD
  5. DIPYRIDAMOLE. [Concomitant]
     Active Substance: DIPYRIDAMOLE
     Dosage: 225 MG, QD
  6. ASPIRIN [ACETYLSALICYLIC ACID] [Concomitant]
     Active Substance: ASPIRIN
     Dosage: 250 MG, QD

REACTIONS (6)
  - Purpura [Recovered/Resolved]
  - Skin hyperpigmentation [Recovered/Resolved]
  - Hypersensitivity [Recovered/Resolved]
  - Therapeutic product cross-reactivity [Recovered/Resolved]
  - Thrombocytopenia [Recovered/Resolved]
  - Eosinophilia [Recovered/Resolved]
